FAERS Safety Report 5403212-3 (Version None)
Quarter: 2007Q3

REPORT INFORMATION
  Report Type: 
  Country: None (occurrence: None)
  Receive Date: 20070730
  Receipt Date: 20070719
  Transmission Date: 20080115
  Serious: Yes (Death)
  Sender: FDA-Public Use
  Company Number: S07-USA-03135-01

PATIENT
  Age: 32 Year
  Sex: Male
  Weight: 88.4514 kg

DRUGS (3)
  1. LEXAPRO [Suspect]
     Indication: DEPRESSION
     Dates: end: 20070601
  2. LUNESTA [Suspect]
     Indication: INSOMNIA
  3. EFFEXOR [Concomitant]

REACTIONS (2)
  - ASPHYXIA [None]
  - VICTIM OF HOMICIDE [None]
